FAERS Safety Report 24253675 (Version 1)
Quarter: 2024Q3

REPORT INFORMATION
  Report Type: Spontaneous
  Country: CN (occurrence: CN)
  Receive Date: 20240827
  Receipt Date: 20240827
  Transmission Date: 20241016
  Serious: Yes (Hospitalization)
  Sender: ELI LILLY AND CO
  Company Number: CN-Merck Healthcare KGaA-2024044549

PATIENT
  Age: 41 Year
  Sex: Male
  Weight: 51 kg

DRUGS (3)
  1. ERBITUX [Suspect]
     Active Substance: CETUXIMAB
     Indication: Colon cancer
     Dosage: 700 MG, OTHER (ONCE IN 3 WEEKS)
     Route: 041
     Dates: start: 20240612
  2. OXALIPLATIN [Suspect]
     Active Substance: OXALIPLATIN
     Indication: Colon cancer
     Dosage: 160 MG, OTHER (ONCE IN 3 WEEKS)
     Route: 041
     Dates: start: 20240612
  3. CAPECITABINE [Suspect]
     Active Substance: CAPECITABINE
     Indication: Colon cancer
     Dosage: 1.5 G, BID
     Route: 048
     Dates: start: 20240612, end: 20240619

REACTIONS (1)
  - Myelosuppression [Recovering/Resolving]

NARRATIVE: CASE EVENT DATE: 20240708
